FAERS Safety Report 14938432 (Version 1)
Quarter: 2018Q2

REPORT INFORMATION
  Report Type: Spontaneous
  Country: US (occurrence: US)
  Receive Date: 20180507
  Receipt Date: 20180507
  Transmission Date: 20180711
  Serious: Yes (Death)
  Sender: FDA-Public Use
  Company Number: None

PATIENT
  Age: 70 Year
  Sex: Male
  Weight: 54 kg

DRUGS (1)
  1. WARFARIN [Suspect]
     Active Substance: WARFARIN
     Indication: GASTROINTESTINAL HAEMORRHAGE
     Route: 048
     Dates: start: 20171113, end: 20171109

REACTIONS (3)
  - Gastrointestinal haemorrhage [None]
  - International normalised ratio increased [None]
  - Hypotension [None]

NARRATIVE: CASE EVENT DATE: 20171026
